FAERS Safety Report 6045445-1 (Version None)
Quarter: 2009Q1

REPORT INFORMATION
  Report Type: 
  Country: None (occurrence: None)
  Receive Date: 20090121
  Receipt Date: 20090112
  Transmission Date: 20090719
  Serious: Yes (Other)
  Sender: FDA-Public Use
  Company Number: CA-PFIZER INC-2008100041

PATIENT

DRUGS (6)
  1. NORVASC [Suspect]
  2. LIPITOR [Concomitant]
  3. MICARDIS [Concomitant]
  4. FOSAMAX [Concomitant]
  5. CALCIUM [Concomitant]
  6. ASPIRIN [Concomitant]

REACTIONS (2)
  - GINGIVAL RECESSION [None]
  - JAW DISORDER [None]
